FAERS Safety Report 11784800 (Version 1)
Quarter: 2015Q4

REPORT INFORMATION
  Report Type: Report from Study
  Country: CA (occurrence: CA)
  Receive Date: 20151130
  Receipt Date: 20151130
  Transmission Date: 20160305
  Serious: Yes (Other)
  Sender: FDA-Public Use
  Company Number: CA-ROCHE-1668122

PATIENT
  Sex: Female

DRUGS (4)
  1. CORTISONE [Suspect]
     Active Substance: CORTISONE\HYDROCORTISONE
     Indication: VERTIGO
  2. CORTISONE [Suspect]
     Active Substance: CORTISONE\HYDROCORTISONE
     Indication: PANCREATITIS
  3. XOLAIR [Suspect]
     Active Substance: OMALIZUMAB
     Indication: CHRONIC SPONTANEOUS URTICARIA
     Route: 058
     Dates: start: 20111214
  4. CORTISONE [Suspect]
     Active Substance: CORTISONE\HYDROCORTISONE
     Indication: EAR DISORDER
     Dosage: HIGH DOSE
     Route: 065

REACTIONS (6)
  - Pancreatitis [Unknown]
  - Anaphylactic shock [Unknown]
  - Vertigo [Unknown]
  - Autoimmune hepatitis [Unknown]
  - Ear disorder [Unknown]
  - Foot fracture [Unknown]
